FAERS Safety Report 25250986 (Version 1)
Quarter: 2025Q2

REPORT INFORMATION
  Report Type: Report from Study
  Country: US (occurrence: US)
  Receive Date: 20250429
  Receipt Date: 20250429
  Transmission Date: 20250717
  Serious: Yes (Other)
  Sender: ELI LILLY AND COMPANY
  Company Number: US-ELI_LILLY_AND_COMPANY-US202502017901

PATIENT
  Age: 78 Year
  Sex: Male

DRUGS (2)
  1. KISUNLA [Suspect]
     Active Substance: DONANEMAB-AZBT
     Indication: Product used for unknown indication
     Route: 065
     Dates: start: 20250212
  2. KISUNLA [Suspect]
     Active Substance: DONANEMAB-AZBT
     Route: 065

REACTIONS (11)
  - Brain oedema [Unknown]
  - Fall [Unknown]
  - Dizziness [Not Recovered/Not Resolved]
  - Dehydration [Unknown]
  - Speech disorder [Unknown]
  - Heart rate decreased [Unknown]
  - Dizziness postural [Not Recovered/Not Resolved]
  - Asthenia [Unknown]
  - Dysstasia [Unknown]
  - Coordination abnormal [Unknown]
  - Headache [Recovered/Resolved]

NARRATIVE: CASE EVENT DATE: 20250201
